FAERS Safety Report 25484412 (Version 1)
Quarter: 2025Q2

REPORT INFORMATION
  Report Type: Spontaneous
  Country: CH (occurrence: CH)
  Receive Date: 20250626
  Receipt Date: 20250626
  Transmission Date: 20250716
  Serious: Yes (Other)
  Sender: PFIZER
  Company Number: None

PATIENT
  Age: 23 Year
  Sex: Female

DRUGS (4)
  1. CYTOTEC [Suspect]
     Active Substance: MISOPROSTOL
     Indication: Abortion induced
     Route: 048
     Dates: start: 20240611, end: 20240611
  2. DOXYLAMINE SUCCINATE\PYRIDOXINE HYDROCHLORIDE [Suspect]
     Active Substance: DOXYLAMINE SUCCINATE\PYRIDOXINE HYDROCHLORIDE
  3. FOLIC ACID [Suspect]
     Active Substance: FOLIC ACID
     Dosage: 5 MG
  4. ASPIRIN [Suspect]
     Active Substance: ASPIRIN
     Indication: Pre-eclampsia
     Dosage: 100 MG
     Dates: start: 202407

REACTIONS (4)
  - Intermenstrual bleeding [Recovered/Resolved]
  - Off label use [Unknown]
  - Drug ineffective for unapproved indication [Unknown]
  - Exposure during pregnancy [Unknown]

NARRATIVE: CASE EVENT DATE: 20240611
